FAERS Safety Report 7432509-0 (Version None)
Quarter: 2011Q2

REPORT INFORMATION
  Report Type: 
  Country: None (occurrence: None)
  Receive Date: 20110422
  Receipt Date: 20110411
  Transmission Date: 20111010
  Serious: No
  Sender: FDA-Public Use
  Company Number: US-B.I. PHARMACEUTICALS,INC./RIDGEFIELD-2011-BP-10419BP

PATIENT
  Age: 62 Year
  Sex: Male

DRUGS (11)
  1. PRADAXA [Suspect]
     Indication: ATRIAL FIBRILLATION
     Dosage: 300 MG
     Route: 048
     Dates: start: 20110101
  2. TOPROL-XL [Concomitant]
     Indication: HYPERTENSION
     Dosage: 25 MG
  3. ALLEGRA [Concomitant]
     Indication: SEASONAL ALLERGY
  4. METFORMIN [Concomitant]
     Indication: DIABETES MELLITUS
  5. MACRODANTIN [Concomitant]
     Indication: PROPHYLAXIS URINARY TRACT INFECTION
  6. IBUPROFEN [Concomitant]
     Indication: BACK PAIN
  7. ALTACE [Concomitant]
     Indication: HYPERTENSION
     Dosage: 10 MG
  8. SIMVASTAIN [Concomitant]
     Indication: BLOOD CHOLESTEROL INCREASED
     Dosage: 20 MG
  9. EFFIENT [Concomitant]
     Indication: STENT PLACEMENT
  10. FLONASE [Concomitant]
     Indication: DRUG THERAPY
  11. NIASPAN [Concomitant]
     Indication: ATRIAL FIBRILLATION

REACTIONS (3)
  - MIDDLE INSOMNIA [None]
  - PARAESTHESIA [None]
  - ABNORMAL DREAMS [None]
